FAERS Safety Report 26155277 (Version 1)
Quarter: 2025Q4

REPORT INFORMATION
  Report Type: Spontaneous
  Country: JP (occurrence: JP)
  Receive Date: 20251215
  Receipt Date: 20251215
  Transmission Date: 20260117
  Serious: Yes (Death, Hospitalization)
  Sender: RECORDATI
  Company Number: JP-ORPHANEU-2025008248

PATIENT
  Age: 70 Year
  Sex: Female

DRUGS (4)
  1. OSILODROSTAT [Suspect]
     Active Substance: OSILODROSTAT
     Indication: Ectopic ACTH syndrome
     Dosage: 2 MG/DAY
  2. OSILODROSTAT [Suspect]
     Active Substance: OSILODROSTAT
     Indication: Pelvic neoplasm
     Dosage: 3 MG/DAY
  3. OSILODROSTAT [Suspect]
     Active Substance: OSILODROSTAT
     Indication: Hyperadrenocorticism
  4. DEXTROSE [Concomitant]
     Active Substance: DEXTROSE MONOHYDRATE
     Indication: Paraneoplastic hypoglycaemia
     Dosage: HIGH-CONCENTRATION, PURIFIED GLUCOSE
     Route: 042

REACTIONS (1)
  - Disease progression [Fatal]
